FAERS Safety Report 7940874-0 (Version None)
Quarter: 2011Q4

REPORT INFORMATION
  Report Type: 
  Country: None (occurrence: None)
  Receive Date: 20111128
  Receipt Date: 20111117
  Transmission Date: 20120403
  Serious: Yes (Other)
  Sender: FDA-Public Use
  Company Number: US-JNJFOC-20111108001

PATIENT
  Sex: Female
  Weight: 67.59 kg

DRUGS (3)
  1. REMICADE [Suspect]
     Indication: CROHN'S DISEASE
     Route: 042
     Dates: start: 20110201, end: 20110901
  2. MULTI-VITAMINS [Concomitant]
     Indication: MEDICAL DIET
  3. ACETAMINOPHEN [Concomitant]
     Indication: PAIN

REACTIONS (3)
  - ABORTION SPONTANEOUS [None]
  - HYPERSENSITIVITY [None]
  - MATERNAL EXPOSURE DURING PREGNANCY [None]
